FAERS Safety Report 9399340 (Version 1)
Quarter: 2013Q3

REPORT INFORMATION
  Report Type: Spontaneous
  Country: US (occurrence: US)
  Receive Date: 20130715
  Receipt Date: 20130715
  Transmission Date: 20140515
  Serious: No
  Sender: FDA-Public Use
  Company Number: US-PFIZER INC-2013204958

PATIENT
  Age: 61 Year
  Sex: Female
  Weight: 72.56 kg

DRUGS (9)
  1. PROTONIX [Suspect]
     Indication: GASTROOESOPHAGEAL REFLUX DISEASE
     Dosage: 40 MG, 1X/DAY
     Dates: start: 2003
  2. PANTOPRAZOLE [Suspect]
     Indication: GASTROOESOPHAGEAL REFLUX DISEASE
     Dosage: UNK
  3. PANTOPRAZOLE [Suspect]
     Indication: GASTROOESOPHAGEAL REFLUX DISEASE
     Dosage: UNK
  4. CENTRUM [Suspect]
     Indication: VITAMIN SUPPLEMENTATION
     Dosage: UNK
  5. CENTRUM [Suspect]
     Indication: MINERAL SUPPLEMENTATION
  6. CHOLECALCIFEROL [Suspect]
     Indication: SUPPLEMENTATION THERAPY
     Dosage: UNK
  7. MAGNESIUM [Suspect]
     Indication: SUPPLEMENTATION THERAPY
     Dosage: UNK
  8. ACTONEL [Suspect]
     Indication: OSTEOPOROSIS
     Dosage: UNK
  9. ACTONEL [Suspect]
     Indication: OSTEOPENIA

REACTIONS (9)
  - Rash [Recovered/Resolved]
  - Headache [Recovered/Resolved]
  - Diarrhoea [Recovered/Resolved]
  - Gastrooesophageal reflux disease [Unknown]
  - Vitamin D decreased [Unknown]
  - Blood magnesium increased [Unknown]
  - Low density lipoprotein increased [Unknown]
  - Blood potassium increased [Unknown]
  - Drug ineffective [Unknown]
